FAERS Safety Report 6812993-3 (Version None)
Quarter: 2010Q3

REPORT INFORMATION
  Report Type: 
  Country: None (occurrence: None)
  Receive Date: 20100701
  Receipt Date: 20100610
  Transmission Date: 20110219
  Serious: Yes (Hospitalization, Other)
  Sender: FDA-Public Use
  Company Number: CO-PFIZER INC-2010069322

PATIENT
  Age: 59 Year
  Sex: Female

DRUGS (11)
  1. ZOLOFT [Suspect]
     Indication: POST-TRAUMATIC STRESS DISORDER
     Dosage: 50 MG, 1X/DAY
     Route: 048
     Dates: start: 20100301
  2. XANAX [Suspect]
     Indication: POST-TRAUMATIC STRESS DISORDER
     Dosage: 0.125 MG, 3X/DAY
     Route: 048
     Dates: start: 20100301, end: 20100515
  3. XANAX [Suspect]
     Dosage: 0.5 MG IN THE MORNING, 0.5 MG AT NOON AND 1 MG (2 TABLETS) IN THE NIGHT
     Route: 048
     Dates: start: 20100515
  4. XANAX [Suspect]
     Dosage: 0.5 MG, 2X/DAY
     Dates: start: 20100610
  5. HYDROXYZINE [Suspect]
  6. SYNTHROID [Concomitant]
     Indication: HYPOPARATHYROIDISM
     Dosage: 125 UG, 1X/DAY
     Route: 048
     Dates: start: 20050101
  7. CALTRATE [Concomitant]
     Indication: MINERAL SUPPLEMENTATION
     Dosage: UNK
     Dates: start: 20050101
  8. CALCITRIOL [Concomitant]
     Indication: MINERAL SUPPLEMENTATION
     Dosage: UNK
     Dates: start: 20050101
  9. OMEPRAZOLE [Concomitant]
     Indication: ABDOMINAL DISCOMFORT
     Dosage: UNK
     Dates: start: 20050101
  10. BIOCRONIL [Concomitant]
     Indication: HYPERTENSION
     Dosage: 100 MG, 2X/DAY
     Route: 048
     Dates: start: 20080101
  11. VITAMIN B COMPLEX CAP [Concomitant]
     Indication: POST-TRAUMATIC STRESS DISORDER
     Dosage: UNK
     Dates: start: 20100415

REACTIONS (9)
  - ASTHENIA [None]
  - BLOOD PRESSURE FLUCTUATION [None]
  - CHEST PAIN [None]
  - HYPERTENSION [None]
  - HYPOTENSION [None]
  - INSOMNIA [None]
  - MUSCLE SPASMS [None]
  - TACHYCARDIA [None]
  - VIITH NERVE PARALYSIS [None]
